FAERS Safety Report 6620602-1 (Version None)
Quarter: 2010Q1

REPORT INFORMATION
  Report Type: 
  Country: None (occurrence: None)
  Receive Date: 20100309
  Receipt Date: 20100305
  Transmission Date: 20100710
  Serious: Yes (Death)
  Sender: FDA-Public Use
  Company Number: JP-JNJFOC-20090709488

PATIENT
  Sex: Male
  Weight: 57 kg

DRUGS (39)
  1. ITRIZOLE [Suspect]
     Indication: FEBRILE NEUTROPENIA
     Route: 041
  2. ITRIZOLE [Suspect]
     Indication: DRUG USE FOR UNKNOWN INDICATION
     Route: 048
  3. MORPHINE HYDROCHLORIDE [Suspect]
     Indication: DERMATITIS EXFOLIATIVE
     Route: 042
  4. PROGRAF [Suspect]
     Indication: PROPHYLAXIS
     Route: 042
  5. PROGRAF [Suspect]
     Route: 042
  6. PROGRAF [Suspect]
     Route: 042
  7. PROGRAF [Suspect]
     Route: 042
  8. PROGRAF [Suspect]
     Route: 042
  9. PROGRAF [Suspect]
     Route: 042
  10. METHOTREXATE [Suspect]
     Indication: PROPHYLAXIS
     Route: 042
  11. METHOTREXATE [Suspect]
     Route: 042
  12. METHOTREXATE [Suspect]
     Route: 042
  13. FENTANYL CITRATE [Suspect]
     Indication: DERMATITIS EXFOLIATIVE
     Route: 042
  14. FUNGUARD [Concomitant]
     Route: 042
  15. CIPROFLOXACIN HYDROCHLORIDE [Concomitant]
     Indication: PROPHYLAXIS
     Route: 048
  16. ZOVIRAX [Concomitant]
     Indication: PROPHYLAXIS
     Route: 048
  17. TAKEPRON [Concomitant]
     Indication: PROPHYLAXIS
     Route: 048
  18. TAKEPRON [Concomitant]
     Route: 042
  19. PREDNISOLONE [Concomitant]
     Indication: T-CELL LYMPHOMA
     Route: 048
  20. BIOFERMIN R [Concomitant]
     Indication: DIARRHOEA
     Route: 048
  21. ALLOID G [Concomitant]
     Indication: GASTRITIS
     Route: 048
  22. URSO 250 [Concomitant]
     Indication: PROPHYLAXIS
     Route: 048
  23. LOPEMIN [Concomitant]
     Indication: DIARRHOEA
     Route: 048
  24. BUSCOPAN [Concomitant]
     Indication: DIARRHOEA
     Route: 048
  25. PENTAZOCINE LACTATE [Concomitant]
     Indication: ABDOMINAL PAIN
     Route: 048
  26. PURSENNID [Concomitant]
     Indication: CONSTIPATION
     Route: 048
  27. LASIX [Concomitant]
     Indication: OEDEMA
     Route: 042
  28. GRAN [Concomitant]
     Indication: PROPHYLAXIS
     Route: 042
  29. MAGNESIUM SULFATE [Concomitant]
     Indication: HYPOMAGNESAEMIA
     Route: 042
  30. MAXIPIME [Concomitant]
     Indication: FEBRILE NEUTROPENIA
     Route: 042
  31. INTRALIPID 10% [Concomitant]
     Indication: DECREASED APPETITE
     Route: 042
  32. VANCOMYCIN [Concomitant]
     Indication: FEBRILE NEUTROPENIA
     Route: 042
  33. ACYCLOVIR [Concomitant]
     Indication: PROPHYLAXIS
     Route: 042
  34. ELEMENMIC [Concomitant]
     Indication: DECREASED APPETITE
     Route: 042
  35. FULCALIQ [Concomitant]
     Indication: DECREASED APPETITE
     Route: 042
  36. IMMUNE GLOBULIN INTRAVENOUS (HUMAN) [Concomitant]
     Indication: PROPHYLAXIS
     Route: 042
  37. ADONA [Concomitant]
     Indication: MELAENA
     Route: 042
  38. CARBENIN [Concomitant]
     Indication: SEPSIS
     Route: 042
  39. MEROPENEM [Concomitant]
     Indication: FEBRILE NEUTROPENIA
     Route: 042

REACTIONS (15)
  - ABDOMINAL PAIN [None]
  - ACUTE RESPIRATORY DISTRESS SYNDROME [None]
  - BACTERIAL SEPSIS [None]
  - CONSTIPATION [None]
  - DERMATITIS EXFOLIATIVE [None]
  - HYPERCHLORAEMIA [None]
  - HYPERNATRAEMIA [None]
  - HYPOKALAEMIA [None]
  - HYPOMAGNESAEMIA [None]
  - ILEUS PARALYTIC [None]
  - JAUNDICE [None]
  - MELAENA [None]
  - OEDEMA [None]
  - SEPSIS [None]
  - STOMATITIS [None]
